FAERS Safety Report 23643425 (Version 1)
Quarter: 2024Q1

REPORT INFORMATION
  Report Type: Spontaneous
  Country: US (occurrence: None)
  Receive Date: 20240316
  Receipt Date: 20240316
  Transmission Date: 20240409
  Serious: Yes (Death, Hospitalization)
  Sender: FDA-Public Use
  Company Number: None

PATIENT
  Age: 63 Year
  Sex: Female
  Weight: 87.1 kg

DRUGS (3)
  1. FLUOROURACIL [Suspect]
     Active Substance: FLUOROURACIL
     Dates: end: 20240226
  2. LEUCOVORIN CALCIUM [Suspect]
     Active Substance: LEUCOVORIN CALCIUM
     Dates: end: 20240226
  3. ELOXATIN [Suspect]
     Active Substance: OXALIPLATIN
     Dates: end: 20240226

REACTIONS (13)
  - Frequent bowel movements [None]
  - Dysphagia [None]
  - Weight decreased [None]
  - Haematemesis [None]
  - Febrile neutropenia [None]
  - Septic shock [None]
  - Tachycardia [None]
  - Thrombocytopenia [None]
  - Acute kidney injury [None]
  - Lactic acidosis [None]
  - Hypotension [None]
  - Gastrointestinal wall thickening [None]
  - Enterocolitis [None]

NARRATIVE: CASE EVENT DATE: 20240310
